FAERS Safety Report 25206555 (Version 1)
Quarter: 2025Q2

REPORT INFORMATION
  Report Type: Spontaneous
  Country: CA (occurrence: CA)
  Receive Date: 20250417
  Receipt Date: 20250417
  Transmission Date: 20250717
  Serious: Yes (Other)
  Sender: RANBAXY
  Company Number: CA-SUN PHARMACEUTICAL INDUSTRIES LTD-2025R1-503585

PATIENT
  Age: 69 Year
  Sex: Male

DRUGS (2)
  1. ISOTRETINOIN [Suspect]
     Active Substance: ISOTRETINOIN
     Indication: Morbihan disease
     Dosage: 10 MILLIGRAM, DAILY
     Route: 048
  2. IVERMECTIN [Concomitant]
     Active Substance: IVERMECTIN
     Indication: Morbihan disease
     Route: 061

REACTIONS (2)
  - Xerosis [Unknown]
  - Cheilitis [Unknown]
